FAERS Safety Report 6471409-X (Version None)
Quarter: 2009Q4

REPORT INFORMATION
  Report Type: 
  Country: None (occurrence: None)
  Receive Date: 20091203
  Receipt Date: 20080424
  Transmission Date: 20100525
  Serious: Yes (Hospitalization)
  Sender: FDA-Public Use
  Company Number: FR-ELI_LILLY_AND_COMPANY-FR200802005168

PATIENT
  Sex: Male

DRUGS (13)
  1. HUMULIN N [Suspect]
     Indication: TYPE 2 DIABETES MELLITUS
     Dosage: 40 IU, EACH MORNING
     Route: 058
  2. HUMULIN N [Suspect]
     Dosage: 30 IU, EACH EVENING
     Route: 058
  3. HUMULIN N [Suspect]
     Dosage: 20 IU, 2/D
     Route: 058
     Dates: start: 20070101, end: 20080107
  4. HUMULIN N [Suspect]
     Dosage: 35 IU, 2/D
     Route: 058
     Dates: start: 20080107
  5. NOVORAPID [Concomitant]
     Dosage: 10 IU, EACH MORNING
     Route: 058
     Dates: end: 20071230
  6. NOVORAPID [Concomitant]
     Dosage: 10 IU, EACH EVENING
     Route: 058
  7. AVANDIA [Concomitant]
     Dates: start: 20071230
  8. ATARAX [Concomitant]
  9. AVLOCARDYL [Concomitant]
  10. SPECIAFOLDINE [Concomitant]
  11. COZAAR [Concomitant]
  12. ALDACTONE [Concomitant]
  13. LASILIX [Concomitant]

REACTIONS (2)
  - HYPOGLYCAEMIA [None]
  - MALAISE [None]
